FAERS Safety Report 7652200-5 (Version None)
Quarter: 2011Q3

REPORT INFORMATION
  Report Type: 
  Country: None (occurrence: None)
  Receive Date: 20110803
  Receipt Date: 20110607
  Transmission Date: 20111222
  Serious: No
  Sender: FDA-Public Use
  Company Number: US-BAYER-2011-050430

PATIENT
  Age: 25 Year
  Sex: Female
  Weight: 54.422 kg

DRUGS (2)
  1. NATAZIA [Suspect]
     Dosage: UNK UNK, QD
     Route: 048
  2. LEVONORGESTREL [Concomitant]
     Indication: CONTRACEPTION
     Dosage: UNK
     Dates: start: 20110407, end: 20110408

REACTIONS (1)
  - WITHDRAWAL BLEED [None]
